FAERS Safety Report 25522689 (Version 1)
Quarter: 2025Q3

REPORT INFORMATION
  Report Type: Spontaneous
  Country: US (occurrence: US)
  Receive Date: 20250707
  Receipt Date: 20250707
  Transmission Date: 20251020
  Serious: No
  Sender: BIOGEN
  Company Number: US-BIOGEN-2021BI00991003

PATIENT
  Age: 44 Year
  Sex: Male

DRUGS (10)
  1. VUMERITY [Suspect]
     Active Substance: DIROXIMEL FUMARATE
     Indication: Multiple sclerosis
     Route: 050
     Dates: start: 20210212
  2. DULOXETINE HYDROCHLORIDE [Concomitant]
     Active Substance: DULOXETINE HYDROCHLORIDE
     Route: 050
  3. JARDIANCE [Concomitant]
     Active Substance: EMPAGLIFLOZIN
     Route: 050
  4. CARBAMAZEPINE [Concomitant]
     Active Substance: CARBAMAZEPINE
     Route: 050
  5. CORTISONE ACETATE [Concomitant]
     Active Substance: CORTISONE ACETATE
     Route: 050
  6. TOLAZAMIDE [Concomitant]
     Active Substance: TOLAZAMIDE
     Route: 050
  7. MIDODRINE HYDROCHLORIDE [Concomitant]
     Active Substance: MIDODRINE HYDROCHLORIDE
     Route: 050
  8. ZYRTEC [Concomitant]
     Active Substance: CETIRIZINE HYDROCHLORIDE
     Route: 050
  9. B12 [Concomitant]
     Route: 050
  10. VITAMIN D3 [Concomitant]
     Active Substance: CHOLECALCIFEROL
     Route: 050

REACTIONS (2)
  - Prescribed overdose [Not Recovered/Not Resolved]
  - Flushing [Recovered/Resolved]

NARRATIVE: CASE EVENT DATE: 20210310
